FAERS Safety Report 10896348 (Version 1)
Quarter: 2015Q1

REPORT INFORMATION
  Report Type: Spontaneous
  Country: US (occurrence: None)
  Receive Date: 20150302
  Receipt Date: 20150302
  Transmission Date: 20150721
  Serious: No
  Sender: FDA-Public Use
  Company Number: None

PATIENT
  Age: 70 Year
  Sex: Female

DRUGS (1)
  1. PROLIA [Suspect]
     Active Substance: DENOSUMAB
     Dosage: RECOMMENDED DURATION OF USE: 60 MG ADMINISTERED AS A SINGLE SUBCUTAEOUS INJECTION ONCE EVERY SIX MONTHS.
     Dates: start: 20141229

REACTIONS (10)
  - Muscle spasms [None]
  - Wound complication [None]
  - Bone pain [None]
  - Arthralgia [None]
  - Hypoaesthesia [None]
  - Impaired healing [None]
  - Scab [None]
  - Balance disorder [None]
  - Wound haemorrhage [None]
  - Fatigue [None]
